FAERS Safety Report 5977344-5 (Version None)
Quarter: 2008Q4

REPORT INFORMATION
  Report Type: 
  Country: None (occurrence: None)
  Receive Date: 20081203
  Receipt Date: 20081125
  Transmission Date: 20090506
  Serious: Yes (Other)
  Sender: FDA-Public Use
  Company Number: PHBS2008GB06466

PATIENT
  Age: 45 Year
  Sex: Female

DRUGS (3)
  1. CYCLOSPORINE [Suspect]
     Indication: STEM CELL TRANSPLANT
  2. WARFARIN SODIUM [Concomitant]
  3. SEPTRIN [Concomitant]

REACTIONS (6)
  - ECZEMA [None]
  - EOSINOPHILIA [None]
  - EOSINOPHILIC PUSTULAR FOLLICULITIS [None]
  - MUMPS [None]
  - RASH PAPULAR [None]
  - RASH PRURITIC [None]
